FAERS Safety Report 8299313 (Version 2)
Quarter: 2013Q2

REPORT INFORMATION
  Report Type: Spontaneous
  Country: JP (occurrence: JP)
  Receive Date: 20111219
  Receipt Date: 20130604
  Transmission Date: 20140414
  Serious: Yes (Other)
  Sender: FDA-Public Use
  Company Number: JP-SANOFI-AVENTIS-2011SA081686

PATIENT
  Age: 79 Year
  Sex: Male
  Weight: 44 kg

DRUGS (5)
  1. ELPLAT [Suspect]
     Indication: COLON CANCER
     Route: 041
     Dates: start: 201012
  2. XELODA [Concomitant]
     Indication: COLON CANCER
     Route: 048
     Dates: start: 201012
  3. AVASTIN [Concomitant]
     Indication: COLON CANCER
     Route: 041
     Dates: start: 201012
  4. LOPERAMIDE HYDROCHLORIDE [Concomitant]
     Indication: DIARRHOEA
     Route: 048
  5. OXYCONTIN [Concomitant]
     Indication: MEGACOLON
     Route: 048

REACTIONS (1)
  - Colitis ischaemic [Recovering/Resolving]
